FAERS Safety Report 24214812 (Version 1)
Quarter: 2024Q3

REPORT INFORMATION
  Report Type: Spontaneous
  Country: US (occurrence: US)
  Receive Date: 20240815
  Receipt Date: 20240815
  Transmission Date: 20241016
  Serious: No
  Sender: RVL PHARMACEUTICALS
  Company Number: US-RVL_Pharmaceuticals-USA-POI1255202400113

PATIENT
  Age: 59 Year
  Sex: Female
  Weight: 79.45 kg

DRUGS (2)
  1. UPNEEQ [Suspect]
     Active Substance: OXYMETAZOLINE HYDROCHLORIDE
     Indication: Eyelid ptosis
     Dosage: OU
     Route: 047
     Dates: start: 20240516, end: 20240516
  2. VITAMIN D [Concomitant]
     Active Substance: VITAMIN D NOS
     Indication: Product used for unknown indication

REACTIONS (5)
  - Nervousness [Recovered/Resolved]
  - Tremor [Recovered/Resolved]
  - Dizziness [Recovered/Resolved]
  - Feeling abnormal [Recovered/Resolved]
  - Hordeolum [Recovered/Resolved]

NARRATIVE: CASE EVENT DATE: 20240516
